FAERS Safety Report 25858152 (Version 1)
Quarter: 2025Q3

REPORT INFORMATION
  Report Type: Spontaneous
  Country: US (occurrence: US)
  Receive Date: 20250929
  Receipt Date: 20250929
  Transmission Date: 20251020
  Serious: No
  Sender: CHIESI
  Company Number: US-CHIESI-2025CHF05222

PATIENT
  Age: 30 Year
  Sex: Female
  Weight: 57 kg

DRUGS (10)
  1. FERRIPROX [Suspect]
     Active Substance: DEFERIPRONE
     Indication: Thalassaemia beta
     Route: 048
     Dates: start: 20210701, end: 2025
  2. FERRIPROX [Suspect]
     Active Substance: DEFERIPRONE
     Indication: Haemochromatosis
     Dosage: 2 DOSAGE FORM, BID
     Route: 048
     Dates: start: 20250721
  3. FERRIPROX [Suspect]
     Active Substance: DEFERIPRONE
     Indication: Red blood cell transfusion
     Dates: start: 20200329, end: 202009
  4. FERRIPROX [Suspect]
     Active Substance: DEFERIPRONE
     Dates: start: 20120330, end: 201506
  5. JADENU [Concomitant]
     Active Substance: DEFERASIROX
     Indication: Product used for unknown indication
  6. VITAMINS [Concomitant]
     Active Substance: VITAMINS
     Indication: Product used for unknown indication
  7. IBUPROFEN [Concomitant]
     Active Substance: IBUPROFEN
     Indication: Product used for unknown indication
  8. ZOFRAN [Concomitant]
     Active Substance: ONDANSETRON HYDROCHLORIDE
     Indication: Product used for unknown indication
  9. REBLOZYL [Concomitant]
     Active Substance: LUSPATERCEPT-AAMT
     Indication: Product used for unknown indication
  10. LUSPATERCEPT [Concomitant]
     Active Substance: LUSPATERCEPT
     Indication: Product used for unknown indication

REACTIONS (4)
  - Nasopharyngitis [Recovered/Resolved]
  - Treatment noncompliance [Unknown]
  - Off label use [Recovered/Resolved]
  - Off label use [Not Recovered/Not Resolved]

NARRATIVE: CASE EVENT DATE: 20210701
